FAERS Safety Report 5136023-7 (Version None)
Quarter: 2006Q4

REPORT INFORMATION
  Report Type: 
  Country: None (occurrence: None)
  Receive Date: 20061020
  Receipt Date: 20061004
  Transmission Date: 20070319
  Serious: No
  Sender: FDA-Public Use
  Company Number: 2006BL004956

PATIENT
  Age: 58 Year
  Sex: Male

DRUGS (5)
  1. DEXAMETHASONE [Suspect]
     Indication: DRUG USE FOR UNKNOWN INDICATION
  2. AMITRITYLINE HYDROCHLORIDE (AMITRIPTYLINE HYDROCHLORIDE) [Suspect]
     Indication: DRUG USE FOR UNKNOWN INDICATION
  3. MABTHERA (RITUXIMAB) [Suspect]
     Indication: DRUG USE FOR UNKNOWN INDICATION
     Dates: start: 20060619, end: 20060619
  4. VFEND [Suspect]
     Indication: DRUG USE FOR UNKNOWN INDICATION
     Dosage: 300 MILLIGRAMS; TWICE A DAY
  5. ZOPICLONE (ZOPICLONE) [Suspect]
     Indication: DRUG USE FOR UNKNOWN INDICATION

REACTIONS (3)
  - AGITATION [None]
  - AMNESIA [None]
  - CONFUSIONAL STATE [None]
